FAERS Safety Report 25467678 (Version 1)
Quarter: 2025Q2

REPORT INFORMATION
  Report Type: Report from Study
  Country: CA (occurrence: CA)
  Receive Date: 20250623
  Receipt Date: 20250623
  Transmission Date: 20250716
  Serious: Yes (Other)
  Sender: TEVA
  Company Number: CA-TEVA-VS-3344778

PATIENT
  Age: 83 Year
  Sex: Male

DRUGS (2)
  1. PREGABALIN [Suspect]
     Active Substance: PREGABALIN
     Indication: Product used for unknown indication
     Route: 065
  2. REMICADE [Suspect]
     Active Substance: INFLIXIMAB
     Indication: Crohn^s disease
     Dosage: DOSE FORM : POWDER FOR SOLUTION INTRAVENOUS, ROUTE OF ADMINISTRATION : INTRAVENOUS DRIP
     Route: 065

REACTIONS (3)
  - Ophthalmic herpes zoster [Recovered/Resolved]
  - Malaise [Recovered/Resolved]
  - Hypersomnia [Recovered/Resolved]
